FAERS Safety Report 8412478-7 (Version None)
Quarter: 2012Q2

REPORT INFORMATION
  Report Type: 
  Country: None (occurrence: None)
  Receive Date: 20120605
  Receipt Date: 20120530
  Transmission Date: 20120825
  Serious: Yes (Hospitalization)
  Sender: FDA-Public Use
  Company Number: US-CELGENEUS-163-21880-12050800

PATIENT
  Sex: Male
  Weight: 72.3 kg

DRUGS (13)
  1. LISINOPRIL [Concomitant]
     Route: 065
     Dates: start: 20120101
  2. METHOTREXATE [Concomitant]
     Route: 037
     Dates: start: 20120101
  3. AMPICILLIN [Concomitant]
     Route: 041
     Dates: start: 20120101
  4. PIPERACILLIN [Concomitant]
     Route: 041
     Dates: start: 20120101
  5. REVLIMID [Suspect]
     Indication: MANTLE CELL LYMPHOMA
     Dosage: 15 MILLIGRAM
     Route: 048
     Dates: start: 20090211
  6. AMOXICILLIN [Concomitant]
     Route: 048
     Dates: start: 20120101
  7. VANCOMYCIN [Concomitant]
     Route: 041
     Dates: start: 20120101
  8. TAZOBACTAM [Concomitant]
     Route: 041
     Dates: start: 20120101
  9. BENDAMUSTINE HYDROCHLORIDE [Concomitant]
     Route: 048
     Dates: start: 20120515
  10. RITUXIMAB [Concomitant]
     Route: 048
     Dates: start: 20120515
  11. FUROSEMIDE [Concomitant]
     Route: 065
     Dates: start: 20120101
  12. CIPROFLOXACIN [Concomitant]
     Route: 041
     Dates: start: 20120101
  13. CARVEDILOL [Concomitant]
     Route: 065
     Dates: start: 20120101

REACTIONS (3)
  - MANTLE CELL LYMPHOMA [None]
  - ASTHENIA [None]
  - WEIGHT DECREASED [None]
